FAERS Safety Report 22016113 (Version 1)
Quarter: 2023Q1

REPORT INFORMATION
  Report Type: Report from Study
  Country: CA (occurrence: CA)
  Receive Date: 20230221
  Receipt Date: 20230221
  Transmission Date: 20230418
  Serious: Yes (Death)
  Sender: FDA-Public Use
  Company Number: CA-drreddys-CLI/CAN/23/0161099

PATIENT
  Age: 60 Year
  Sex: Female

DRUGS (1)
  1. AZACITIDINE [Suspect]
     Active Substance: AZACITIDINE
     Indication: Acute myeloid leukaemia (in remission)
     Dosage: 75MG/M^2 FOR 6 DAYS EVERY 28 DAYS
     Route: 065

REACTIONS (1)
  - Death [Fatal]
